FAERS Safety Report 8568248 (Version 5)
Quarter: 2012Q4

REPORT INFORMATION
  Report Type: 
  Country: JP (occurrence: JP)
  Receive Date: 20120518
  Receipt Date: 20121206
  Transmission Date: 20130627
  Serious: Yes (Hospitalization)
  Sender: FDA-Public Use
  Company Number: PHHY2012JP042028

PATIENT
  Age: 59 Year
  Sex: Male

DRUGS (8)
  1. TEGRETOL [Suspect]
     Indication: SCIATICA
     Dosage: 200 mg, daily
     Route: 048
     Dates: start: 20110615, end: 20110905
  2. VOLTAREN [Suspect]
     Indication: SCIATICA
     Dosage: 25 mg, daily
     Route: 048
     Dates: start: 20110615, end: 20110905
  3. RINLAXER [Suspect]
     Indication: SCIATICA
     Route: 048
  4. MUCOSTA [Suspect]
     Indication: SCIATICA
     Route: 048
  5. OPALMON [Suspect]
     Indication: SCIATICA
     Route: 048
  6. NEUROTROPIN [Suspect]
     Indication: SCIATICA
     Route: 048
  7. METHYCOBAL [Suspect]
     Indication: SCIATICA
     Route: 048
  8. SYAKUYAKUKANZOTO [Suspect]
     Indication: SCIATICA
     Route: 048

REACTIONS (15)
  - Drug reaction with eosinophilia and systemic symptoms [Recovered/Resolved]
  - Pyrexia [Unknown]
  - Generalised erythema [Unknown]
  - Face oedema [Unknown]
  - Flushing [Unknown]
  - Papule [Unknown]
  - Lymphadenopathy [Unknown]
  - Epidermal necrosis [Unknown]
  - Oedema [Unknown]
  - Lymphocytic infiltration [Unknown]
  - Extravasation blood [Unknown]
  - Liver disorder [Unknown]
  - White blood cell count increased [Unknown]
  - Human herpesvirus 6 infection [Unknown]
  - Lymphocyte stimulation test positive [Unknown]
